FAERS Safety Report 5059553-5 (Version None)
Quarter: 2006Q3

REPORT INFORMATION
  Report Type: 
  Country: None (occurrence: None)
  Receive Date: 20060724
  Receipt Date: 20051228
  Transmission Date: 20061208
  Serious: No
  Sender: FDA-Public Use
  Company Number: PHHO2005JP20084

PATIENT
  Age: 52 Year
  Sex: Male

DRUGS (1)
  1. DIOVAN [Suspect]
     Indication: HYPERTENSION
     Dosage: 80 MG, QD
     Route: 048
     Dates: start: 20040304, end: 20040701

REACTIONS (4)
  - FALL [None]
  - HEADACHE [None]
  - MUSCULOSKELETAL STIFFNESS [None]
  - VERTIGO [None]
